FAERS Safety Report 4743622-0 (Version None)
Quarter: 2005Q3

REPORT INFORMATION
  Report Type: 
  Country: None (occurrence: None)
  Receive Date: 20050812
  Receipt Date: 20050803
  Transmission Date: 20060218
  Serious: Yes (Hospitalization)
  Sender: FDA-Public Use
  Company Number: PL-BRISTOL-MYERS SQUIBB COMPANY-13062195

PATIENT
  Age: 76 Year
  Sex: Male
  Weight: 68 kg

DRUGS (7)
  1. CISPLATIN [Suspect]
     Indication: PENIS CARCINOMA
     Dates: start: 20050601, end: 20050601
  2. IRINOTECAN HCL [Suspect]
     Indication: PENIS CARCINOMA
     Dates: start: 20050601, end: 20050608
  3. ONDANSETRON [Concomitant]
     Dates: start: 20050601, end: 20050611
  4. BISOPROLOL FUMARATE [Concomitant]
     Dates: start: 20050101
  5. SPIRONOLACTONE [Concomitant]
     Dates: start: 20050101
  6. ATORVASTATIN CALCIUM [Concomitant]
     Dates: start: 20020101
  7. AMLODIPINE [Concomitant]
     Dates: start: 20020101

REACTIONS (4)
  - DIARRHOEA [None]
  - INTESTINAL OBSTRUCTION [None]
  - NEUTROPENIA [None]
  - PNEUMONIA [None]
